FAERS Safety Report 23671041 (Version 1)
Quarter: 2024Q1

REPORT INFORMATION
  Report Type: Spontaneous
  Country: US (occurrence: US)
  Receive Date: 20240326
  Receipt Date: 20240326
  Transmission Date: 20240409
  Serious: No
  Sender: FDA-Public Use
  Company Number: US-TEVA-VS-3161155

PATIENT
  Age: 71 Year
  Sex: Male

DRUGS (2)
  1. PIMECROLIMUS [Suspect]
     Active Substance: PIMECROLIMUS
     Indication: Psoriasis
     Route: 065
  2. ENBREL [Concomitant]
     Active Substance: ETANERCEPT

REACTIONS (5)
  - Product prescribing issue [Unknown]
  - Insomnia [Unknown]
  - Thermal burn [Unknown]
  - Pain [Recovered/Resolved]
  - Discomfort [Unknown]

NARRATIVE: CASE EVENT DATE: 20240218
